FAERS Safety Report 5228149-4 (Version None)
Quarter: 2007Q1

REPORT INFORMATION
  Report Type: 
  Country: None (occurrence: None)
  Receive Date: 20070130
  Receipt Date: 20070117
  Transmission Date: 20070707
  Serious: Yes (Other)
  Sender: FDA-Public Use
  Company Number: 2006US-03370

PATIENT
  Age: 21 Year
  Sex: Female

DRUGS (2)
  1. ISOTRETINOIN [Suspect]
     Indication: ACNE
     Dosage: 40 MG, BID, ORAL
     Route: 048
     Dates: start: 20060616, end: 20060719
  2. SPIRONOLACTONE [Concomitant]

REACTIONS (4)
  - CONDITION AGGRAVATED [None]
  - CORNEAL DEGENERATION [None]
  - DRY EYE [None]
  - KERATOCONUS [None]
